FAERS Safety Report 10067518 (Version 1)
Quarter: 2014Q2

REPORT INFORMATION
  Report Type: Spontaneous
  Country: US (occurrence: None)
  Receive Date: 20140408
  Receipt Date: 20140408
  Transmission Date: 20141212
  Serious: Yes (Life-Threatening)
  Sender: FDA-Public Use
  Company Number: None

PATIENT
  Age: 32 Year
  Sex: Male
  Weight: 52.6 kg

DRUGS (1)
  1. XARELTO [Suspect]

REACTIONS (2)
  - Pulmonary embolism [None]
  - Drug ineffective [None]
